FAERS Safety Report 9103646 (Version 4)
Quarter: 2013Q2

REPORT INFORMATION
  Report Type: Report from Study
  Country: IT (occurrence: IT)
  Receive Date: 20130211
  Receipt Date: 20130610
  Transmission Date: 20140414
  Serious: Yes (Hospitalization)
  Sender: FDA-Public Use
  Company Number: IT-009507513-1212ITA002456

PATIENT
  Age: 53 Year
  Sex: Female
  Weight: 83 kg

DRUGS (9)
  1. SYCREST [Suspect]
     Indication: BIPOLAR DISORDER
     Dosage: 10 MG, BID
     Route: 060
     Dates: start: 20120801, end: 20120824
  2. SEROQUEL [Concomitant]
     Indication: BIPOLAR DISORDER
     Dosage: 300 MG, BID
     Route: 048
     Dates: start: 2008, end: 20120810
  3. SEROQUEL [Concomitant]
     Indication: BIPOLAR DISORDER
     Dosage: 400 MG, BID
     Route: 048
     Dates: start: 20120810, end: 20120821
  4. DEPAKINE CHRONO [Concomitant]
     Indication: BIPOLAR DISORDER
     Dosage: 300 MG, BID
     Route: 048
     Dates: start: 20120821, end: 20120822
  5. DEPAKINE CHRONO [Concomitant]
     Dosage: 900 MG, QD
     Route: 048
  6. DEPAKINE CHRONO [Concomitant]
     Dosage: 1000 MG/DAY
     Route: 048
     Dates: start: 20120823
  7. ATARAX (HYDROXYZINE HYDROCHLORIDE) [Concomitant]
     Indication: INSOMNIA
     Dosage: 25 MG, QD
     Route: 048
     Dates: start: 20120821, end: 20120826
  8. DELORAZEPAM [Concomitant]
     Indication: ANXIETY
     Dosage: 1 MG, TID
     Route: 048
     Dates: start: 20120821, end: 20120822
  9. DELORAZEPAM [Concomitant]
     Indication: INSOMNIA

REACTIONS (2)
  - Product measured potency issue [Recovered/Resolved]
  - Drug ineffective [Recovered/Resolved]
